FAERS Safety Report 5323932-9 (Version None)
Quarter: 2007Q2

REPORT INFORMATION
  Report Type: 
  Country: None (occurrence: None)
  Receive Date: 20070514
  Receipt Date: 20070504
  Transmission Date: 20071010
  Serious: Yes (Death, Hospitalization)
  Sender: FDA-Public Use
  Company Number: US-SANOFI-SYNTHELABO-A03200702899

PATIENT
  Sex: Male
  Weight: 83.9 kg

DRUGS (10)
  1. PLAVIX [Suspect]
     Indication: CORONARY ARTERIAL STENT INSERTION
     Route: 048
     Dates: end: 20070201
  2. ASPIRIN [Concomitant]
     Route: 065
  3. MULTI-VITAMIN [Concomitant]
     Dosage: UNK
     Route: 065
  4. MICRO-K [Concomitant]
     Dosage: UNK
     Route: 065
  5. LASIX [Concomitant]
     Dosage: UNK
     Route: 065
  6. LIPITOR [Concomitant]
     Dosage: UNK
     Route: 065
  7. PROTONIX [Concomitant]
     Dosage: UNK
     Route: 065
  8. ISORBID [Concomitant]
     Dosage: UNK
     Route: 065
     Dates: start: 20060601
  9. COREG [Concomitant]
     Route: 065
     Dates: start: 20060601, end: 20070217
  10. COREG [Concomitant]
     Route: 065
     Dates: start: 20070217

REACTIONS (4)
  - BLOOD PRESSURE DECREASED [None]
  - DEATH [None]
  - NEPHROLITHIASIS [None]
  - PAIN IN EXTREMITY [None]
